FAERS Safety Report 16473271 (Version 1)
Quarter: 2019Q2

REPORT INFORMATION
  Report Type: Spontaneous
  Country: NL (occurrence: NL)
  Receive Date: 20190625
  Receipt Date: 20190625
  Transmission Date: 20190711
  Serious: Yes (Life-Threatening, Hospitalization)
  Sender: FDA-Public Use
  Company Number: NL-009507513-1906NLD008166

PATIENT
  Age: 6 Month
  Sex: Male
  Weight: 6 kg

DRUGS (1)
  1. AERIUS (DESLORATADINE) [Suspect]
     Active Substance: DESLORATADINE
     Indication: ERYTHEMA
     Dosage: 1 TIME PER DAY 1 MG
     Route: 048
     Dates: start: 20190524, end: 20190524

REACTIONS (4)
  - Skin discolouration [Recovered/Resolved]
  - Depressed level of consciousness [Recovered/Resolved]
  - Hypotonia [Recovered/Resolved]
  - Vomiting [Recovered/Resolved]

NARRATIVE: CASE EVENT DATE: 20190524
